FAERS Safety Report 6177982-3 (Version None)
Quarter: 2009Q2

REPORT INFORMATION
  Report Type: 
  Country: None (occurrence: None)
  Receive Date: 20090504
  Receipt Date: 20090423
  Transmission Date: 20091009
  Serious: Yes (Hospitalization, Other)
  Sender: FDA-Public Use
  Company Number: US-AMGEN-QUU344135

PATIENT
  Sex: Female

DRUGS (18)
  1. EPOGEN [Suspect]
     Indication: ANAEMIA
     Route: 058
     Dates: start: 20080101
  2. ARANESP [Suspect]
     Indication: ANAEMIA
     Dates: start: 20060101, end: 20080101
  3. NEUPOGEN [Concomitant]
     Indication: DRUG USE FOR UNKNOWN INDICATION
     Dates: start: 20080711
  4. NEORAL [Concomitant]
  5. METOPROLOL TARTRATE [Concomitant]
  6. ACTIGALL [Concomitant]
  7. FOSAMAX [Concomitant]
  8. CALCIUM CARBONATE [Concomitant]
  9. FOLIC ACID [Concomitant]
  10. MAGNESIUM OXIDE [Concomitant]
  11. NEXIUM [Concomitant]
  12. PEGASYS [Concomitant]
  13. FELODIPINE [Concomitant]
  14. ZOFRAN [Concomitant]
  15. CLINDAMYCIN HCL [Concomitant]
  16. VITAMIN D [Concomitant]
  17. MULTI-VITAMINS [Concomitant]
  18. ASPIRIN [Concomitant]

REACTIONS (2)
  - APLASIA PURE RED CELL [None]
  - LIVER TRANSPLANT [None]
